FAERS Safety Report 25034042 (Version 1)
Quarter: 2025Q1

REPORT INFORMATION
  Report Type: Spontaneous
  Country: GB (occurrence: GB)
  Receive Date: 20250304
  Receipt Date: 20250304
  Transmission Date: 20250408
  Serious: Yes (Hospitalization, Other)
  Sender: NOVO NORDISK
  Company Number: None

PATIENT
  Sex: Female

DRUGS (1)
  1. WEGOVY [Suspect]
     Active Substance: SEMAGLUTIDE
     Indication: Product used for unknown indication

REACTIONS (5)
  - Meningitis [Unknown]
  - Vomiting [Not Recovered/Not Resolved]
  - Influenza [Unknown]
  - Feeding disorder [Unknown]
  - Illness [Unknown]

NARRATIVE: CASE EVENT DATE: 20250215
